FAERS Safety Report 8454362-9 (Version None)
Quarter: 2012Q2

REPORT INFORMATION
  Report Type: 
  Country: None (occurrence: None)
  Receive Date: 20120621
  Receipt Date: 20120529
  Transmission Date: 20120825
  Serious: No
  Sender: FDA-Public Use
  Company Number: US-ALLERGAN-1207537US

PATIENT
  Age: 72 Year
  Sex: Female

DRUGS (6)
  1. ALPHAGAN P [Suspect]
     Indication: GLAUCOMA
     Dosage: 1 GTT, QHS
     Route: 047
     Dates: end: 20110801
  2. SYNTHROID [Concomitant]
     Indication: THYROIDECTOMY
  3. EVISTA                             /01303201/ [Concomitant]
     Indication: BREAST LUMP REMOVAL
     Dosage: UNK
     Route: 048
  4. SYNTHROID [Concomitant]
     Indication: HYPOTHYROIDISM
     Dosage: 50 NG, QD
     Route: 048
     Dates: start: 19700101
  5. LUMIGAN [Suspect]
     Indication: OPEN ANGLE GLAUCOMA
     Dosage: 1 GTT, QHS
     Route: 047
     Dates: start: 20110801
  6. TIMOLOL MALEATE [Concomitant]
     Indication: GLAUCOMA
     Dosage: 2 GTT, QAM
     Route: 047
     Dates: start: 20100101

REACTIONS (3)
  - IRIS HYPERPIGMENTATION [None]
  - EYELID IRRITATION [None]
  - OCULAR HYPERAEMIA [None]
